FAERS Safety Report 5287377-2 (Version None)
Quarter: 2007Q1

REPORT INFORMATION
  Report Type: 
  Country: None (occurrence: None)
  Receive Date: 20070116
  Receipt Date: 20061106
  Transmission Date: 20070707
  Serious: No
  Sender: FDA-Public Use
  Company Number: 2006SP003940

PATIENT
  Age: 56 Year
  Sex: Male
  Weight: 86.1834 kg

DRUGS (15)
  1. LUNESTA [Suspect]
     Indication: INSOMNIA
     Dosage: SEE IMAGE
     Route: 048
     Dates: start: 20060305, end: 20060922
  2. LUNESTA [Suspect]
     Indication: INSOMNIA
     Dosage: SEE IMAGE
     Route: 048
     Dates: start: 20060923, end: 20061006
  3. LUNESTA [Suspect]
     Indication: INSOMNIA
     Dosage: SEE IMAGE
     Route: 048
     Dates: start: 20061007, end: 20061022
  4. LAMICTAL [Suspect]
     Indication: BIPOLAR I DISORDER
     Dosage: SEE IMAGE
     Dates: start: 20060305, end: 20060405
  5. LAMICTAL [Suspect]
     Indication: BIPOLAR I DISORDER
     Dosage: SEE IMAGE
     Dates: start: 20060406, end: 20060915
  6. LAMICTAL [Suspect]
     Indication: BIPOLAR I DISORDER
     Dosage: SEE IMAGE
     Dates: start: 20060916, end: 20060922
  7. LAMICTAL [Suspect]
     Indication: BIPOLAR I DISORDER
     Dosage: SEE IMAGE
     Dates: start: 20060923, end: 20060929
  8. LAMICTAL [Suspect]
     Indication: BIPOLAR I DISORDER
     Dosage: SEE IMAGE
     Dates: start: 20060930, end: 20061006
  9. LAMICTAL [Suspect]
     Indication: BIPOLAR I DISORDER
     Dosage: SEE IMAGE
     Dates: start: 20061007, end: 20061013
  10. LAMICTAL [Suspect]
     Indication: BIPOLAR I DISORDER
     Dosage: SEE IMAGE
     Dates: start: 20061014, end: 20061020
  11. LAMICTAL [Suspect]
     Indication: BIPOLAR I DISORDER
     Dosage: SEE IMAGE
     Dates: start: 20061021, end: 20061022
  12. CELEBREX [Concomitant]
  13. LEXAPRO [Concomitant]
  14. XANAX [Concomitant]
  15. TADALAFIL [Concomitant]

REACTIONS (27)
  - ANGER [None]
  - ANHEDONIA [None]
  - ANOREXIA [None]
  - ANXIETY [None]
  - COORDINATION ABNORMAL [None]
  - DISORIENTATION [None]
  - DIZZINESS [None]
  - DYSARTHRIA [None]
  - DYSKINESIA [None]
  - DYSPEPSIA [None]
  - DYSPNOEA [None]
  - FATIGUE [None]
  - FEAR [None]
  - HYPERACUSIS [None]
  - IMPATIENCE [None]
  - INCREASED APPETITE [None]
  - INNER EAR DISORDER [None]
  - INSOMNIA [None]
  - MEMORY IMPAIRMENT [None]
  - MENTAL IMPAIRMENT [None]
  - NERVOUSNESS [None]
  - PANIC REACTION [None]
  - PARAESTHESIA [None]
  - SELF ESTEEM DECREASED [None]
  - STRESS [None]
  - TREMOR [None]
  - WEIGHT DECREASED [None]
